FAERS Safety Report 6112239-8 (Version None)
Quarter: 2009Q1

REPORT INFORMATION
  Report Type: 
  Country: None (occurrence: None)
  Receive Date: 20090310
  Receipt Date: 20090225
  Transmission Date: 20090719
  Serious: Yes (Other)
  Sender: FDA-Public Use
  Company Number: DEP_00242_2009

PATIENT
  Age: 26 Year
  Sex: Male

DRUGS (1)
  1. CIPROFLOXACIN [Suspect]
     Indication: DIARRHOEA
     Dosage: (500 MG BID)

REACTIONS (7)
  - ANOREXIA [None]
  - ASTHENIA [None]
  - CHOLESTATIC LIVER INJURY [None]
  - HEPATOMEGALY [None]
  - HERPES ZOSTER OPHTHALMIC [None]
  - PIGMENTATION DISORDER [None]
  - RASH [None]
